FAERS Safety Report 4874074-8 (Version None)
Quarter: 2006Q1

REPORT INFORMATION
  Report Type: 
  Country: None (occurrence: None)
  Receive Date: 20060104
  Receipt Date: 20051220
  Transmission Date: 20060701
  Serious: Yes (Life-Threatening, Hospitalization, Other)
  Sender: FDA-Public Use
  Company Number: 2005172564

PATIENT
  Age: 59 Year
  Sex: Male
  Weight: 81.6475 kg

DRUGS (4)
  1. VIAGRA [Suspect]
     Indication: ERECTILE DYSFUNCTION
     Dosage: 50 MG AS NECESSARY
  2. LOPRESSOR [Concomitant]
  3. GLIPIZIDE [Concomitant]
  4. METFORMIN [Concomitant]

REACTIONS (6)
  - ARTHRALGIA [None]
  - CEREBROVASCULAR ACCIDENT [None]
  - CYANOPSIA [None]
  - DRUG INEFFECTIVE [None]
  - HYPOAESTHESIA [None]
  - NERVE BLOCK [None]
